FAERS Safety Report 9183162 (Version 1)
Quarter: 2013Q1

REPORT INFORMATION
  Report Type: Spontaneous
  Country: US (occurrence: US)
  Receive Date: 20130322
  Receipt Date: 20130322
  Transmission Date: 20140127
  Serious: No
  Sender: FDA-Public Use
  Company Number: US-BRISTOL-MYERS SQUIBB COMPANY-16917601

PATIENT
  Age: 61 Year
  Sex: Male
  Weight: 84.35 kg

DRUGS (2)
  1. ERBITUX [Suspect]
     Indication: BLADDER CANCER
     Dosage: STARTED COUPLE OF YEARS AGO
  2. ERBITUX [Suspect]
     Indication: COLORECTAL CANCER
     Dosage: STARTED COUPLE OF YEARS AGO

REACTIONS (3)
  - Skin disorder [Not Recovered/Not Resolved]
  - Skin exfoliation [Not Recovered/Not Resolved]
  - Skin ulcer [Not Recovered/Not Resolved]
